FAERS Safety Report 4509884-X (Version None)
Quarter: 2004Q4

REPORT INFORMATION
  Report Type: 
  Country: None (occurrence: None)
  Receive Date: 20041119
  Receipt Date: 20041028
  Transmission Date: 20050328
  Serious: Yes (Hospitalization)
  Sender: FDA-Public Use
  Company Number: FR_041004943

PATIENT
  Age: 48 Year
  Sex: Male
  Weight: 76 kg

DRUGS (3)
  1. GEMZAR [Suspect]
     Indication: LUNG ADENOCARCINOMA
     Dates: start: 20040708
  2. CISPLATYL (CISPLATIN PHARMACIA) [Concomitant]
  3. PARAPLATINE (CARBOPLATIN SANOFI-SYNTHELABO) [Concomitant]

REACTIONS (6)
  - AUTOIMMUNE DISORDER [None]
  - CYANOSIS [None]
  - EXTREMITY NECROSIS [None]
  - MICROANGIOPATHY [None]
  - PAIN [None]
  - RAYNAUD'S PHENOMENON [None]
